FAERS Safety Report 13793270 (Version 1)
Quarter: 2017Q3

REPORT INFORMATION
  Report Type: Spontaneous
  Country: FR (occurrence: FR)
  Receive Date: 20170726
  Receipt Date: 20170726
  Transmission Date: 20171127
  Serious: Yes (Hospitalization, Other)
  Sender: FDA-Public Use
  Company Number: FR-PFIZER INC-2017314746

PATIENT
  Age: 56 Year
  Sex: Female

DRUGS (12)
  1. PARACETAMOL [Suspect]
     Active Substance: ACETAMINOPHEN
     Dosage: 1 G, 3X/DAY
  2. FASLODEX [Suspect]
     Active Substance: FULVESTRANT
     Indication: BREAST CANCER
     Dosage: 2 DOSAGE FORM ONCE PER MONTH
     Route: 030
     Dates: start: 201703
  3. SPECIAFOLDINE [Suspect]
     Active Substance: FOLIC ACID
     Dosage: 15 MG, WEEKLY
     Route: 048
     Dates: start: 201602
  4. LAROXYL [Suspect]
     Active Substance: AMITRIPTYLINE
     Dosage: 10 MG, 1X/DAY IN THE EVENING
     Route: 048
     Dates: start: 20170705
  5. IBRANCE [Suspect]
     Active Substance: PALBOCICLIB
     Indication: BREAST CANCER
     Dosage: 125 MG DAILY FOR 21 DAYS AND THEN INTERRUPTION FOR 7 DAYS
     Route: 048
     Dates: start: 20170612
  6. LAROXYL [Suspect]
     Active Substance: AMITRIPTYLINE
     Indication: NEURALGIA
     Dosage: 100 MG, 1X/DAY AT BEDTIME
     Route: 048
     Dates: start: 201606, end: 20170702
  7. TOPALGIC LP [Suspect]
     Active Substance: TRAMADOL
     Dosage: 100 MG, 2X/DAY MORNING AND EVENING
  8. ELUDRIL /00676401/ [Suspect]
     Active Substance: CHLORHEXIDINE GLUCONATE\TETRACAINE HYDROCHLORIDE
  9. BICARBONATE [Concomitant]
     Active Substance: BICARBONATE ION
  10. METHOTREXATE SODIUM. [Suspect]
     Active Substance: METHOTREXATE SODIUM
     Indication: RHEUMATOID ARTHRITIS
     Dosage: 20 MG, WEEKLY
     Route: 048
     Dates: start: 201602, end: 20170703
  11. INNOHEP [Suspect]
     Active Substance: TINZAPARIN SODIUM
     Indication: VENOUS THROMBOSIS
     Dosage: 10000 IU, DAILY
     Route: 058
     Dates: start: 201702, end: 20170703
  12. INNOHEP [Suspect]
     Active Substance: TINZAPARIN SODIUM
     Dosage: 250 IU/KG, 2X/DAY
     Route: 058
     Dates: start: 20170705

REACTIONS (19)
  - Acute kidney injury [Unknown]
  - Bone marrow failure [Unknown]
  - Epistaxis [Unknown]
  - Hydronephrosis [Unknown]
  - Gastrointestinal hypomotility [Unknown]
  - Condition aggravated [Unknown]
  - Aphthous ulcer [Unknown]
  - Dysphagia [Unknown]
  - Pancytopenia [Unknown]
  - Toxicity to various agents [Unknown]
  - Hypovolaemia [Unknown]
  - Mucosal inflammation [Unknown]
  - Lymphoedema [Unknown]
  - Vomiting [Unknown]
  - Weight decreased [Unknown]
  - Neoplasm progression [Unknown]
  - Hepatic lesion [Unknown]
  - Pleural effusion [Unknown]
  - Pain in extremity [Unknown]

NARRATIVE: CASE EVENT DATE: 201706
